FAERS Safety Report 6131147-X (Version None)
Quarter: 2009Q1

REPORT INFORMATION
  Report Type: 
  Country: None (occurrence: None)
  Receive Date: 20090325
  Receipt Date: 20090313
  Transmission Date: 20090719
  Serious: Yes (Other)
  Sender: FDA-Public Use
  Company Number: US-PFIZER INC-2009183439

PATIENT
  Sex: Female
  Weight: 95.254 kg

DRUGS (8)
  1. AROMASIN [Suspect]
     Indication: BREAST CANCER
     Dosage: 25 MG, 1X/DAY
     Dates: start: 20090201
  2. TYLENOL [Concomitant]
     Indication: BACK PAIN
  3. METFORMIN HYDROCHLORIDE [Concomitant]
     Indication: DIABETES MELLITUS
  4. LIPITOR [Concomitant]
  5. SYNTHROID [Concomitant]
  6. GLIPIZIDE [Concomitant]
     Indication: DIABETES MELLITUS
  7. ALEVE [Concomitant]
     Indication: BACK PAIN
  8. LISINOPRIL [Concomitant]
     Indication: HYPERTENSION

REACTIONS (3)
  - DIZZINESS [None]
  - HEADACHE [None]
  - VERTIGO [None]
